FAERS Safety Report 6648500-8 (Version None)
Quarter: 2010Q1

REPORT INFORMATION
  Report Type: 
  Country: None (occurrence: None)
  Receive Date: 20100324
  Receipt Date: 20100319
  Transmission Date: 20100710
  Serious: Yes (Life-Threatening, Hospitalization)
  Sender: FDA-Public Use
  Company Number: US-BAYER-201011430BCC

PATIENT
  Age: 41 Year
  Sex: Male
  Weight: 84 kg

DRUGS (1)
  1. ALEVE (CAPLET) [Suspect]
     Indication: PAIN
     Dosage: CONSUMER TOOK 440 TO 880 MG DAILY OFF AND ON
     Route: 048
     Dates: start: 20100131

REACTIONS (6)
  - BLOOD IRON DECREASED [None]
  - GASTROINTESTINAL HAEMORRHAGE [None]
  - HAEMATEMESIS [None]
  - HAEMORRHAGE [None]
  - MYOCARDIAL INFARCTION [None]
  - PEPTIC ULCER HAEMORRHAGE [None]
